FAERS Safety Report 4429686-2 (Version None)
Quarter: 2004Q3

REPORT INFORMATION
  Report Type: 
  Country: None (occurrence: None)
  Receive Date: 20040816
  Receipt Date: 20040728
  Transmission Date: 20050211
  Serious: Yes (Life-Threatening, Hospitalization)
  Sender: FDA-Public Use
  Company Number: 1639

PATIENT
  Age: 36 Year
  Sex: Female
  Weight: 106.5953 kg

DRUGS (23)
  1. AVINZA [Suspect]
     Indication: MULTIPLE SCLEROSIS
     Dosage: 240 MG QD PO
     Route: 048
     Dates: start: 20030801, end: 20040401
  2. AVINZA [Suspect]
     Indication: PAIN
     Dosage: 240 MG QD PO
     Route: 048
     Dates: start: 20030801, end: 20040401
  3. AVINZA [Suspect]
     Indication: MULTIPLE SCLEROSIS
     Dosage: 120 MG QD PO
     Route: 048
     Dates: start: 20040401, end: 20040601
  4. AVINZA [Suspect]
     Indication: PAIN
     Dosage: 120 MG QD PO
     Route: 048
     Dates: start: 20040401, end: 20040601
  5. AVINZA [Suspect]
     Indication: MULTIPLE SCLEROSIS
     Dosage: 90 MG QD PO
     Route: 048
     Dates: start: 20040601, end: 20040701
  6. AVINZA [Suspect]
     Indication: PAIN
     Dosage: 90 MG QD PO
     Route: 048
     Dates: start: 20040601, end: 20040701
  7. GLUCOPHAGE [Suspect]
  8. ZOCOR [Suspect]
  9. ASPIRIN [Concomitant]
  10. CLONAZEPAM [Concomitant]
  11. CYCLOBENZAPRINE HCL [Concomitant]
  12. FEXOFENADINE HCL [Concomitant]
  13. INTERFERON BETA-1A [Concomitant]
  14. LEVETIRACETAM [Concomitant]
  15. LORAZEPAM [Concomitant]
  16. METFORMIN HCL [Concomitant]
  17. MITOXANTRONE [Concomitant]
  18. MONTELUKAST [Concomitant]
  19. ORAL TRANSMUCOSAL FENTANYL [Concomitant]
  20. PROMETHAZINE [Concomitant]
  21. SIMVASTATIN [Concomitant]
  22. TIZANIDINE HCL [Concomitant]
  23. ZONISAMIDE [Concomitant]

REACTIONS (8)
  - DRUG WITHDRAWAL SYNDROME [None]
  - HEPATIC FAILURE [None]
  - MULTI-ORGAN FAILURE [None]
  - MULTIPLE DRUG OVERDOSE [None]
  - NERVOUS SYSTEM DISORDER [None]
  - RENAL FAILURE [None]
  - RESPIRATORY FAILURE [None]
  - RHABDOMYOLYSIS [None]
